FAERS Safety Report 6235454-1 (Version None)
Quarter: 2009Q2

REPORT INFORMATION
  Report Type: 
  Country: None (occurrence: None)
  Receive Date: 20090615
  Receipt Date: 20090604
  Transmission Date: 20091009
  Serious: Yes (Hospitalization)
  Sender: FDA-Public Use
  Company Number: 1000006062

PATIENT
  Age: 17 Year
  Sex: Female
  Weight: 52 kg

DRUGS (1)
  1. ESCITALOPRAM [Suspect]
     Indication: DEPRESSION
     Dosage: (20 MG, ONCE), ORAL
     Route: 048
     Dates: start: 20090422, end: 20090422

REACTIONS (5)
  - DIZZINESS [None]
  - GASTROINTESTINAL HAEMORRHAGE [None]
  - METRORRHAGIA [None]
  - NAUSEA [None]
  - SUICIDE ATTEMPT [None]
